FAERS Safety Report 4818532-0 (Version None)
Quarter: 2005Q4

REPORT INFORMATION
  Report Type: 
  Country: None (occurrence: None)
  Receive Date: 20051031
  Receipt Date: 20051017
  Transmission Date: 20060501
  Serious: Yes (Death, Hospitalization, Other)
  Sender: FDA-Public Use
  Company Number: 2005036298

PATIENT
  Age: 81 Year
  Sex: Female
  Weight: 90.7194 kg

DRUGS (6)
  1. DETROL LA [Suspect]
     Indication: POLLAKIURIA
     Dosage: 4 MG (4 MG, DAILY INTERVAL:  EVERY DAY), ORAL
     Route: 048
  2. LASIX [Concomitant]
  3. ZOCOR [Concomitant]
  4. POTASSIUM (POTASSIUM) [Concomitant]
  5. NORVASC [Concomitant]
  6. VICODIN [Concomitant]

REACTIONS (6)
  - ASCITES [None]
  - DRUG INEFFECTIVE [None]
  - GALLBLADDER CANCER [None]
  - MEMORY IMPAIRMENT [None]
  - METASTASES TO STOMACH [None]
  - RECURRENT CANCER [None]
